FAERS Safety Report 5530166-1 (Version None)
Quarter: 2007Q4

REPORT INFORMATION
  Report Type: 
  Country: None (occurrence: None)
  Receive Date: 20071128
  Receipt Date: 20071128
  Transmission Date: 20080405
  Serious: Yes (Other)
  Sender: FDA-Public Use
  Company Number: None

PATIENT
  Sex: Female
  Weight: 66.9056 kg

DRUGS (2)
  1. EVISTA [Suspect]
     Indication: BREAST CANCER
     Dosage: 60MG DAILY PO
     Route: 048
     Dates: start: 20060101, end: 20070721
  2. EVISTA [Suspect]
     Indication: OSTEOPOROSIS
     Dosage: 60MG DAILY PO
     Route: 048
     Dates: start: 20060101, end: 20070721

REACTIONS (1)
  - TRANSIENT ISCHAEMIC ATTACK [None]
